FAERS Safety Report 14368341 (Version 1)
Quarter: 2018Q1

REPORT INFORMATION
  Report Type: Spontaneous
  Country: FR (occurrence: FR)
  Receive Date: 20180109
  Receipt Date: 20180109
  Transmission Date: 20180509
  Serious: Yes (Life-Threatening, Hospitalization, Other)
  Sender: FDA-Public Use
  Company Number: FR-PFIZER INC-2018008159

PATIENT
  Age: 44 Year
  Sex: Female
  Weight: 87 kg

DRUGS (3)
  1. AMLOR [Concomitant]
     Active Substance: AMLODIPINE BESYLATE
     Indication: HYPERTENSION
     Dosage: 5 MG, 2X/DAY
     Route: 048
  2. XANAX [Suspect]
     Active Substance: ALPRAZOLAM
     Dosage: 30 MG, SINGLE
     Route: 048
     Dates: start: 20171107, end: 20171107
  3. TERALITHE [Suspect]
     Active Substance: LITHIUM CARBONATE
     Dosage: 60 G, SINGLE
     Route: 048
     Dates: start: 20171107, end: 20171107

REACTIONS (5)
  - Tremor [Recovered/Resolved]
  - Suicide attempt [Unknown]
  - Intentional overdose [Unknown]
  - Somnolence [Recovered/Resolved]
  - Vomiting [Recovered/Resolved]

NARRATIVE: CASE EVENT DATE: 20171107
